FAERS Safety Report 8409455 (Version 4)
Quarter: 2012Q4

REPORT INFORMATION
  Report Type: 
  Country: US (occurrence: US)
  Receive Date: 20120216
  Receipt Date: 20121109
  Transmission Date: 20130627
  Serious: Yes (Disabling, Other)
  Sender: FDA-Public Use
  Company Number: US-PFIZER INC-2012040020

PATIENT
  Age: 45 Year
  Sex: Female
  Weight: 99.77 kg

DRUGS (9)
  1. LYRICA [Suspect]
     Indication: MULTIPLE SCLEROSIS
     Dosage: 300 mg, 2x/day
     Route: 048
     Dates: start: 2010
  2. LYRICA [Suspect]
     Indication: FIBROMYALGIA
  3. LYRICA [Suspect]
     Indication: DEGENERATIVE DISC DISEASE
  4. LYRICA [Suspect]
     Indication: ENCEPHALOPATHY
  5. LYRICA [Suspect]
     Indication: SPINAL DISORDER
  6. SYNTHROID [Concomitant]
     Indication: THYROID DISORDER
     Dosage: 175 ug, daily
     Dates: start: 1992
  7. VITAMIN B12 [Concomitant]
     Dosage: 1000 IU, daily
  8. INTEGRA [Concomitant]
     Indication: ANEMIA
     Dosage: UNK, daily
  9. LEVOTHYROXINE [Concomitant]
     Indication: HYPERTHYROIDISM
     Dosage: 175 ug, daily

REACTIONS (4)
  - Multiple sclerosis [Recovered/Resolved]
  - Weight increased [Unknown]
  - Increased appetite [Unknown]
  - Food craving [Unknown]
